FAERS Safety Report 19809269 (Version 1)
Quarter: 2021Q3

REPORT INFORMATION
  Report Type: Spontaneous
  Country: US (occurrence: US)
  Receive Date: 20210909
  Receipt Date: 20210909
  Transmission Date: 20211014
  Serious: No
  Sender: FDA-Public Use
  Company Number: US-BAYER-2021-208191

PATIENT
  Age: 19 Year
  Sex: Female

DRUGS (1)
  1. MIRENA [Suspect]
     Active Substance: LEVONORGESTREL
     Dosage: 20 ?G, CONT
     Route: 015
     Dates: start: 20210907, end: 20210907

REACTIONS (2)
  - Complication of device insertion [None]
  - Procedural pain [None]

NARRATIVE: CASE EVENT DATE: 20210907
